FAERS Safety Report 5442736-X (Version None)
Quarter: 2007Q3

REPORT INFORMATION
  Report Type: 
  Country: None (occurrence: None)
  Receive Date: 20070904
  Receipt Date: 20070828
  Transmission Date: 20080115
  Serious: Yes (Hospitalization)
  Sender: FDA-Public Use
  Company Number: JP-BOEHRINGER INGELHEIM PHARMACEUTICALS, INC.-2007-BP-20045NB

PATIENT
  Sex: Female
  Weight: 50 kg

DRUGS (16)
  1. PRAMIPEXOLE DIHYDROCHLORIDE [Suspect]
     Indication: PARKINSON'S DISEASE
     Route: 048
     Dates: start: 20041028, end: 20051110
  2. RISEDRONATE SODIUM [Concomitant]
     Indication: OSTEOPOROSIS
     Route: 048
     Dates: start: 20040819, end: 20041228
  3. ASPIRIN [Concomitant]
     Indication: CEREBRAL INFARCTION
     Route: 048
     Dates: start: 20030115
  4. LIPITOR [Concomitant]
     Indication: HYPERCHOLESTEROLAEMIA
     Route: 048
     Dates: start: 20030115
  5. SYMMETREL [Concomitant]
     Indication: PARKINSON'S DISEASE
     Route: 048
     Dates: start: 20030115
  6. FLUVOXAMINE MALEATE [Concomitant]
     Indication: DEPRESSION
     Route: 048
     Dates: start: 20040509
  7. MEXITIL [Concomitant]
     Indication: VENTRICULAR EXTRASYSTOLES
     Route: 048
     Dates: start: 20031210, end: 20050119
  8. OMEPRAZON [Concomitant]
     Indication: REFLUX OESOPHAGITIS
     Route: 048
     Dates: start: 20030115
  9. MEILAX [Concomitant]
     Indication: DEPRESSION
     Route: 048
     Dates: start: 20030115, end: 20041228
  10. RISPERDAL [Concomitant]
     Indication: SCHIZOPHRENIA
     Route: 048
     Dates: start: 20030115, end: 20041226
  11. METHYCOBAL [Concomitant]
     Indication: NEUROPATHY PERIPHERAL
     Route: 048
     Dates: start: 20040728, end: 20041226
  12. VOLTAREN [Concomitant]
     Indication: BACK PAIN
     Route: 048
     Dates: start: 20040728
  13. ZYPREXA [Concomitant]
     Indication: HALLUCINATION
     Route: 048
     Dates: start: 20041229, end: 20051110
  14. ZYPREXA [Concomitant]
     Indication: DELUSION
  15. SINGULAIR [Concomitant]
     Indication: ASTHMA
     Route: 048
     Dates: start: 20050113, end: 20050728
  16. ZYRTEC [Concomitant]
     Indication: RHINITIS ALLERGIC
     Route: 048
     Dates: start: 20050113, end: 20050728

REACTIONS (1)
  - HOSPITALISATION [None]
